FAERS Safety Report 12376306 (Version 1)
Quarter: 2016Q2

REPORT INFORMATION
  Report Type: Spontaneous
  Country: US (occurrence: None)
  Receive Date: 20160516
  Receipt Date: 20160516
  Transmission Date: 20160815
  Serious: No
  Sender: FDA-Public Use
  Company Number: None

PATIENT
  Age: 53 Year
  Sex: Female

DRUGS (14)
  1. GABAPENTIN. [Concomitant]
     Active Substance: GABAPENTIN
  2. SIMVASTATIN. [Concomitant]
     Active Substance: SIMVASTATIN
  3. FOLIC ACID. [Concomitant]
     Active Substance: FOLIC ACID
  4. GLATOPA [Suspect]
     Active Substance: GLATIRAMER ACETATE
     Indication: MULTIPLE SCLEROSIS
     Route: 058
     Dates: start: 20160413
  5. TRAMADOL HCL [Concomitant]
     Active Substance: TRAMADOL HYDROCHLORIDE
  6. OMEPRAZOLE. [Concomitant]
     Active Substance: OMEPRAZOLE
  7. METHOCARBAM [Concomitant]
  8. NEURONTIN [Concomitant]
     Active Substance: GABAPENTIN
  9. BACLOFEN. [Concomitant]
     Active Substance: BACLOFEN
  10. DULOXETINE. [Concomitant]
     Active Substance: DULOXETINE
  11. ALPRAZOLAM. [Concomitant]
     Active Substance: ALPRAZOLAM
  12. TRIAMT/HCTZ [Concomitant]
     Active Substance: HYDROCHLOROTHIAZIDE\TRIAMTERENE
  13. AMITRIPTYLIN [Concomitant]
     Active Substance: AMITRIPTYLINE
  14. ROBAXIN [Concomitant]
     Active Substance: METHOCARBAMOL

REACTIONS (4)
  - Fatigue [None]
  - Anxiety [None]
  - Musculoskeletal stiffness [None]
  - Depressed mood [None]

NARRATIVE: CASE EVENT DATE: 201604
